FAERS Safety Report 6484313-8 (Version None)
Quarter: 2009Q4

REPORT INFORMATION
  Report Type: 
  Country: None (occurrence: None)
  Receive Date: 20091209
  Receipt Date: 20090928
  Transmission Date: 20100525
  Serious: No
  Sender: FDA-Public Use
  Company Number: US-AMGEN-KDL348926

PATIENT
  Sex: Male

DRUGS (1)
  1. ENBREL [Suspect]
     Indication: RHEUMATOID ARTHRITIS
     Route: 058
     Dates: start: 20090318

REACTIONS (9)
  - ARTHRALGIA [None]
  - BURNING SENSATION [None]
  - COUGH [None]
  - HYPERHIDROSIS [None]
  - JOINT STIFFNESS [None]
  - PAIN IN EXTREMITY [None]
  - RHINORRHOEA [None]
  - SNEEZING [None]
  - SPINAL COLUMN STENOSIS [None]
